FAERS Safety Report 4598321-5 (Version None)
Quarter: 2005Q1

REPORT INFORMATION
  Report Type: 
  Country: None (occurrence: None)
  Receive Date: 20050303
  Receipt Date: 20050303
  Transmission Date: 20050727
  Serious: Yes (Death)
  Sender: FDA-Public Use
  Company Number: None

PATIENT
  Age: 26 Year
  Sex: Male

DRUGS (5)
  1. DAUNORUBICIN HCL [Suspect]
     Indication: ACUTE LEUKAEMIA
     Dosage: 95 MG IV X 3 DAYS
     Route: 042
     Dates: start: 20040506, end: 20040508
  2. DAUNORUBICIN HCL [Suspect]
     Indication: ACUTE LEUKAEMIA
     Dosage: 95 MG IV X 3 DAYS
     Route: 042
     Dates: start: 20040524, end: 20040526
  3. CYTARABINE [Suspect]
     Indication: ACUTE LEUKAEMIA
     Dosage: 210 MG IVCI X 7 DAYS
     Route: 042
     Dates: start: 20040506, end: 20040513
  4. CYTARABINE [Suspect]
     Indication: ACUTE LEUKAEMIA
     Dosage: 210 MG IVCI X 7 DAYS
     Route: 042
     Dates: start: 20040524, end: 20040531
  5. GM0CAF [Concomitant]

REACTIONS (1)
  - DEATH [None]
